FAERS Safety Report 13545400 (Version 1)
Quarter: 2017Q2

REPORT INFORMATION
  Report Type: Spontaneous
  Country: US (occurrence: US)
  Receive Date: 20170513
  Receipt Date: 20170513
  Transmission Date: 20170830
  Serious: No
  Sender: FDA-Public Use
  Company Number: None

PATIENT
  Age: 27 Year
  Sex: Female
  Weight: 44.1 kg

DRUGS (3)
  1. METOCLOPROMIDE [Suspect]
     Active Substance: METOCLOPRAMIDE
     Indication: HYPEREMESIS GRAVIDARUM
     Dates: start: 20170314, end: 20170509
  2. PEPCID [Concomitant]
     Active Substance: FAMOTIDINE
  3. COLACE [Concomitant]
     Active Substance: DOCUSATE SODIUM

REACTIONS (6)
  - Drug withdrawal syndrome [None]
  - Depression [None]
  - Feeling abnormal [None]
  - Exposure during pregnancy [None]
  - Anxiety [None]
  - Loss of personal independence in daily activities [None]
